FAERS Safety Report 8862632 (Version 6)
Quarter: 2019Q1

REPORT INFORMATION
  Report Type: Spontaneous
  Country: US (occurrence: US)
  Receive Date: 20121026
  Receipt Date: 20190201
  Transmission Date: 20190418
  Serious: Yes (Death, Hospitalization, Disabling, Other)
  Sender: FDA-Public Use
  Company Number: US-MERCK-1210USA006484

PATIENT
  Sex: Female

DRUGS (2)
  1. FOSAMAX [Suspect]
     Active Substance: ALENDRONATE SODIUM
     Indication: OSTEOPOROSIS
     Dosage: 70 MG, QW
     Route: 048
     Dates: start: 20031104, end: 201003
  2. ALENDRONATE SODIUM. [Suspect]
     Active Substance: ALENDRONATE SODIUM
     Indication: OSTEOPOROSIS
     Dosage: 70 MG, QW
     Route: 048
     Dates: start: 20080228, end: 201003

REACTIONS (40)
  - Contusion [Recovering/Resolving]
  - Cardiomegaly [Unknown]
  - Chronic obstructive pulmonary disease [Unknown]
  - Spondylolisthesis [Unknown]
  - Compression fracture [Unknown]
  - Ligament disorder [Unknown]
  - Lumbar spinal stenosis [Unknown]
  - Myelodysplastic syndrome [Not Recovered/Not Resolved]
  - Pneumonia [Not Recovered/Not Resolved]
  - Acute myeloid leukaemia [Not Recovered/Not Resolved]
  - Hiatus hernia [Not Recovered/Not Resolved]
  - Death [Fatal]
  - Femur fracture [Recovering/Resolving]
  - Tibia fracture [Recovered/Resolved]
  - Atrial fibrillation [Not Recovered/Not Resolved]
  - Osteoarthritis [Unknown]
  - Renal cyst [Unknown]
  - Intervertebral disc protrusion [Unknown]
  - Anaemia [Unknown]
  - Thrombocytosis [Unknown]
  - Dysphagia [Not Recovered/Not Resolved]
  - Torticollis [Not Recovered/Not Resolved]
  - Splenomegaly [Not Recovered/Not Resolved]
  - Fibula fracture [Recovering/Resolving]
  - Depression [Unknown]
  - Anxiety [Unknown]
  - Haemangioma [Unknown]
  - Arrhythmia [Unknown]
  - Prothrombin time abnormal [Recovering/Resolving]
  - Escherichia urinary tract infection [Unknown]
  - Rib fracture [Unknown]
  - Hypertension [Unknown]
  - Arthropathy [Unknown]
  - Cardiac failure congestive [Not Recovered/Not Resolved]
  - Arthralgia [Unknown]
  - Fall [Recovering/Resolving]
  - International normalised ratio increased [Recovering/Resolving]
  - Respiratory failure [Not Recovered/Not Resolved]
  - Lymphadenopathy mediastinal [Recovering/Resolving]
  - Arthropathy [Unknown]

NARRATIVE: CASE EVENT DATE: 2008
